FAERS Safety Report 5953671-2 (Version None)
Quarter: 2008Q4

REPORT INFORMATION
  Report Type: 
  Country: None (occurrence: None)
  Receive Date: 20081114
  Receipt Date: 20081107
  Transmission Date: 20090506
  Serious: Yes (Hospitalization)
  Sender: FDA-Public Use
  Company Number: IE-SANOFI-SYNTHELABO-F01200801661

PATIENT
  Sex: Male
  Weight: 72.6 kg

DRUGS (4)
  1. DEXAMETHASONE 0.5MG TAB [Concomitant]
     Dosage: 16 MG
     Route: 048
     Dates: start: 20081024, end: 20081025
  2. KYTRIL [Concomitant]
     Dosage: 160 MG
     Route: 048
     Dates: start: 20081024, end: 20081025
  3. TAXOTERE [Suspect]
     Dosage: 36 MG
     Route: 042
     Dates: start: 20081023, end: 20081023
  4. OXALIPLATIN [Suspect]
     Indication: GASTROOESOPHAGEAL CANCER
     Dosage: 160 MG
     Route: 042
     Dates: start: 20081023, end: 20081023

REACTIONS (1)
  - HAEMATEMESIS [None]
